FAERS Safety Report 21848350 (Version 1)
Quarter: 2023Q1

REPORT INFORMATION
  Report Type: Report from Study
  Country: US (occurrence: US)
  Receive Date: 20230111
  Receipt Date: 20230111
  Transmission Date: 20230417
  Serious: No
  Sender: FDA-Public Use
  Company Number: US-ABBVIE-4226907

PATIENT
  Age: 47 Year
  Sex: Female

DRUGS (1)
  1. RINVOQ [Suspect]
     Active Substance: UPADACITINIB
     Indication: Product used for unknown indication
     Route: 048

REACTIONS (9)
  - Haemorrhoids [Unknown]
  - Frequent bowel movements [Unknown]
  - Peripheral swelling [Unknown]
  - Influenza [Unknown]
  - COVID-19 [Unknown]
  - Muscular weakness [Unknown]
  - Paraesthesia [Unknown]
  - Burning sensation [Unknown]
  - Pain in extremity [Unknown]

NARRATIVE: CASE EVENT DATE: 20221028
